FAERS Safety Report 13622715 (Version 3)
Quarter: 2017Q3

REPORT INFORMATION
  Report Type: Report from Study
  Country: NL (occurrence: NL)
  Receive Date: 20170607
  Receipt Date: 20170807
  Transmission Date: 20171127
  Serious: Yes (Death, Hospitalization)
  Sender: FDA-Public Use
  Company Number: PHHY2017NL081362

PATIENT
  Age: 57 Year
  Sex: Female

DRUGS (2)
  1. SANDOSTATIN LAR DEPOT [Suspect]
     Active Substance: OCTREOTIDE ACETATE
     Dosage: UNK
     Route: 030
     Dates: start: 20160504
  2. SANDOSTATIN LAR DEPOT [Suspect]
     Active Substance: OCTREOTIDE ACETATE
     Indication: NEUROENDOCRINE TUMOUR
     Dosage: 40 MG/ML, QMO (20 MG/2ML, 2 INJECTIONS 1 X EVERY 4 WEEKS))
     Route: 030

REACTIONS (5)
  - Cardiac procedure complication [Fatal]
  - Hypotension [Fatal]
  - Cardiac disorder [Unknown]
  - Fluid retention [Recovered/Resolved with Sequelae]
  - Chest pain [Fatal]

NARRATIVE: CASE EVENT DATE: 20170515
